FAERS Safety Report 10971239 (Version 3)
Quarter: 2015Q4

REPORT INFORMATION
  Report Type: Spontaneous
  Country: US (occurrence: US)
  Receive Date: 20150331
  Receipt Date: 20151015
  Transmission Date: 20160304
  Serious: Yes (Hospitalization, Other)
  Sender: FDA-Public Use
  Company Number: US-BAYER-2015-067244

PATIENT
  Age: 50 Year
  Sex: Female
  Weight: 89.8 kg

DRUGS (9)
  1. SINGULAIR [Concomitant]
     Active Substance: MONTELUKAST SODIUM
     Dosage: 10 MG, DAILY
     Route: 048
  2. YASMIN [Suspect]
     Active Substance: DROSPIRENONE\ETHINYL ESTRADIOL
     Indication: CONTRACEPTION
     Dosage: UNK
     Dates: start: 2008, end: 2013
  3. KEFLEX [Concomitant]
     Active Substance: CEPHALEXIN
     Dosage: UNK, TID
     Route: 048
  4. CENTRAL-VITE [Concomitant]
     Dosage: UNK, QD
     Route: 048
  5. HYDROCODONE W/ACETAMINOPHEN [Concomitant]
     Active Substance: ACETAMINOPHEN\HYDROCODONE BITARTRATE
     Dosage: 5-325
     Route: 048
  6. ADVAIR HFA [Concomitant]
     Active Substance: FLUTICASONE PROPIONATE\SALMETEROL XINAFOATE
     Dosage: 250/50  1 DISK BID
  7. YAZ [Suspect]
     Active Substance: DROSPIRENONE\ETHINYL ESTRADIOL
     Indication: CONTRACEPTION
     Dosage: UNK
     Dates: start: 2008, end: 2013
  8. ALBUTEROL. [Concomitant]
     Active Substance: ALBUTEROL
     Dosage: UNK, PRN
  9. SEREVENT DISKUS [Concomitant]
     Active Substance: SALMETEROL XINAFOATE
     Dosage: UNK, QD

REACTIONS (13)
  - Exercise tolerance decreased [Recovered/Resolved]
  - Injury [None]
  - Gallbladder disorder [None]
  - Cholecystitis chronic [None]
  - Deep vein thrombosis [None]
  - Pain [None]
  - Cardiac hypertrophy [None]
  - Cerebrovascular accident [None]
  - Cardiac discomfort [None]
  - Pulmonary embolism [Recovered/Resolved]
  - Hyperchlorhydria [None]
  - Thrombosis [None]
  - Emotional distress [None]

NARRATIVE: CASE EVENT DATE: 2011
